FAERS Safety Report 10557330 (Version 1)
Quarter: 2014Q4

REPORT INFORMATION
  Report Type: Spontaneous
  Country: US (occurrence: US)
  Receive Date: 20141031
  Receipt Date: 20141031
  Transmission Date: 20150529
  Serious: Yes (Other)
  Sender: FDA-Public Use
  Company Number: US-BAYER-2014-156895

PATIENT
  Age: 26 Year
  Sex: Female

DRUGS (1)
  1. SKYLA [Suspect]
     Active Substance: LEVONORGESTREL
     Indication: MENORRHAGIA
     Dosage: UNK
     Route: 015
     Dates: start: 20141013, end: 20141021

REACTIONS (12)
  - Abdominal pain [Recovering/Resolving]
  - Pelvic pain [Recovering/Resolving]
  - Dehydration [Recovering/Resolving]
  - Back pain [Recovering/Resolving]
  - Abasia [Recovering/Resolving]
  - Product use issue [None]
  - Muscle spasms [None]
  - Vomiting [Recovering/Resolving]
  - Nausea [Recovering/Resolving]
  - Pallor [Recovering/Resolving]
  - Muscle spasms [Recovering/Resolving]
  - Food allergy [None]

NARRATIVE: CASE EVENT DATE: 201410
